FAERS Safety Report 5017535-3 (Version None)
Quarter: 2006Q2

REPORT INFORMATION
  Report Type: 
  Country: None (occurrence: None)
  Receive Date: 20060601
  Receipt Date: 20060601
  Transmission Date: 20061013
  Serious: Yes (Hospitalization)
  Sender: FDA-Public Use
  Company Number: None

PATIENT
  Age: 51 Year
  Sex: Female
  Weight: 72.1 kg

DRUGS (16)
  1. VALSARTAN [Suspect]
  2. INFLUENZA VIRUS VACCINE [Concomitant]
  3. ALPRAZOLAM [Concomitant]
  4. ATORVASTATIN CALCIUM [Concomitant]
  5. CALCIUM ACETATE [Concomitant]
  6. CARVEDILOL [Concomitant]
  7. METOCLOPRAMIDE [Concomitant]
  8. MINOXIDIL [Concomitant]
  9. MULTIVITAMIN WITH MINERALS [Concomitant]
  10. NEVIRAPINE [Concomitant]
  11. NOVOLIN PEN [Concomitant]
  12. OXYCODONE AND ACETAMINOPHEN [Concomitant]
  13. PANTOPRAZOLE, INJ PWDR [Concomitant]
  14. VALSARTAN [Concomitant]
  15. BENADRYL [Concomitant]
  16. SOLU-MEDROL [Concomitant]

REACTIONS (1)
  - EYE SWELLING [None]
